FAERS Safety Report 6377235-4 (Version None)
Quarter: 2009Q3

REPORT INFORMATION
  Report Type: 
  Country: None (occurrence: None)
  Receive Date: 20090925
  Receipt Date: 20090916
  Transmission Date: 20100115
  Serious: Yes (Hospitalization)
  Sender: FDA-Public Use
  Company Number: B0561828A

PATIENT
  Sex: Female
  Weight: 70 kg

DRUGS (7)
  1. LAMICTAL [Suspect]
     Indication: DRUG USE FOR UNKNOWN INDICATION
     Dosage: 200MG PER DAY
     Route: 048
     Dates: start: 20081202
  2. DESORELLE [Suspect]
     Indication: CONTRACEPTION
     Route: 048
     Dates: start: 20080517, end: 20090204
  3. ZOLOFT [Suspect]
     Indication: DEPRESSION
     Dosage: 100MG PER DAY
     Route: 048
     Dates: start: 20081202
  4. CETIRIZINE HCL [Concomitant]
     Indication: URTICARIA
     Route: 065
     Dates: start: 20081217
  5. DERMOVATE [Concomitant]
     Indication: SKIN DISORDER
     Route: 058
     Dates: start: 20081217
  6. DOLOL [Concomitant]
     Indication: PAIN
     Dosage: 50MG TWICE PER DAY
     Route: 048
     Dates: start: 20080403
  7. IBUPROFEN [Concomitant]
     Indication: PAIN
     Dosage: 400MG FOUR TIMES PER DAY
     Route: 048
     Dates: start: 20071214

REACTIONS (4)
  - DRUG INEFFECTIVE [None]
  - DRUG INTERACTION [None]
  - ECTOPIC PREGNANCY [None]
  - UNINTENDED PREGNANCY [None]
